FAERS Safety Report 8997804 (Version 2)
Quarter: 2013Q1

REPORT INFORMATION
  Report Type: Spontaneous
  Country: JP (occurrence: JP)
  Receive Date: 20130104
  Receipt Date: 20130117
  Transmission Date: 20140127
  Serious: Yes (Other)
  Sender: FDA-Public Use
  Company Number: JP-ROCHE-1175088

PATIENT
  Age: 46 Year
  Sex: Male

DRUGS (2)
  1. XELODA [Suspect]
     Indication: SMALL INTESTINE CARCINOMA
     Dosage: DOSAGE IS UNCERTAIN.
     Route: 048
  2. XELODA [Suspect]
     Indication: OFF LABEL USE

REACTIONS (2)
  - Extrapyramidal disorder [Recovering/Resolving]
  - Convulsion [Recovering/Resolving]
